FAERS Safety Report 13105575 (Version 1)
Quarter: 2017Q1

REPORT INFORMATION
  Report Type: Spontaneous
  Country: GB (occurrence: GB)
  Receive Date: 20170111
  Receipt Date: 20170111
  Transmission Date: 20170428
  Serious: Yes (Other)
  Sender: FDA-Public Use
  Company Number: GB-SEBELA IRELAND LIMITED-2016SEB01546

PATIENT

DRUGS (1)
  1. HYDROCORTISONE. [Suspect]
     Active Substance: HYDROCORTISONE
     Indication: COLITIS
     Route: 042

REACTIONS (2)
  - Hypokalaemia [Unknown]
  - Electrocardiogram change [Unknown]
